FAERS Safety Report 4654833-7 (Version None)
Quarter: 2005Q2

REPORT INFORMATION
  Report Type: 
  Country: None (occurrence: None)
  Receive Date: 20050506
  Receipt Date: 20041217
  Transmission Date: 20051028
  Serious: No
  Sender: FDA-Public Use
  Company Number: US-GLAXOSMITHKLINE-A0537757A

PATIENT
  Age: 14 Month
  Sex: Male

DRUGS (2)
  1. AMOXIL [Suspect]
     Indication: LOWER RESPIRATORY TRACT INFECTION
     Dosage: 1.5TSP TWICE PER DAY
     Route: 048
  2. NO CONCURRENT MEDICATION [Concomitant]

REACTIONS (5)
  - ABDOMINAL DISTENSION [None]
  - CONSTIPATION [None]
  - INSOMNIA [None]
  - NASAL CONGESTION [None]
  - RASH [None]
